FAERS Safety Report 13689674 (Version 5)
Quarter: 2017Q3

REPORT INFORMATION
  Report Type: Spontaneous
  Country: JP (occurrence: JP)
  Receive Date: 20170626
  Receipt Date: 20170825
  Transmission Date: 20171127
  Serious: Yes (Hospitalization, Other)
  Sender: FDA-Public Use
  Company Number: JP-PFIZER INC-2017272146

PATIENT
  Age: 71 Year
  Sex: Male

DRUGS (9)
  1. NEXIUM [Concomitant]
     Active Substance: ESOMEPRAZOLE MAGNESIUM
     Dosage: 20 MG, 1X/DAY
     Route: 048
  2. ETHYL LOFLAZEPATE [Concomitant]
     Active Substance: ETHYL LOFLAZEPATE
     Dosage: 1 MG, 1X/DAY
     Route: 048
  3. LEXAPRO [Concomitant]
     Active Substance: ESCITALOPRAM OXALATE
     Dosage: 10 MG, 1X/DAY
     Route: 048
  4. LYRICA [Interacting]
     Active Substance: PREGABALIN
     Indication: PARAESTHESIA ORAL
  5. PITAVASTATIN. [Concomitant]
     Active Substance: PITAVASTATIN CALCIUM
     Dosage: 2 MG, 1X/DAY
     Route: 048
  6. LYRICA [Suspect]
     Active Substance: PREGABALIN
     Indication: LIP PAIN
     Dosage: UNK
     Route: 048
     Dates: start: 20140208
  7. ASPIRIN. [Concomitant]
     Active Substance: ASPIRIN
     Dosage: 100 MG, 1X/DAY
     Route: 048
  8. URIEF [Concomitant]
     Active Substance: SILODOSIN
     Dosage: 4 MG, 1X/DAY
     Route: 048
  9. CELECOX [Concomitant]
     Active Substance: CELECOXIB
     Dosage: 100 MG, 2X/DAY
     Route: 048

REACTIONS (7)
  - Aggression [Recovered/Resolved]
  - Condition aggravated [Unknown]
  - Parkinsonism [Recovered/Resolved]
  - Drug interaction [Unknown]
  - Amnesia [Unknown]
  - Lip pain [Unknown]
  - Dementia [Recovered/Resolved with Sequelae]

NARRATIVE: CASE EVENT DATE: 201402
